FAERS Safety Report 4975999-5 (Version None)
Quarter: 2006Q2

REPORT INFORMATION
  Report Type: 
  Country: None (occurrence: None)
  Receive Date: 20060418
  Receipt Date: 20050414
  Transmission Date: 20061013
  Serious: Yes (Hospitalization, Disabling)
  Sender: FDA-Public Use
  Company Number: US-MERCK-0504USA02872

PATIENT
  Age: 36 Year
  Sex: Female
  Weight: 79 kg

DRUGS (1)
  1. VIOXX [Suspect]
     Indication: BACK PAIN
     Route: 048
     Dates: start: 19990101, end: 20020101

REACTIONS (40)
  - ANGINA PECTORIS [None]
  - ANGINA UNSTABLE [None]
  - ARTHRITIS [None]
  - BACK INJURY [None]
  - BACK PAIN [None]
  - CHEST PAIN [None]
  - COLD SWEAT [None]
  - CORONARY ARTERY DISEASE [None]
  - CORONARY ARTERY OCCLUSION [None]
  - DYSARTHRIA [None]
  - DYSGEUSIA [None]
  - DYSLIPIDAEMIA [None]
  - EPIGASTRIC DISCOMFORT [None]
  - FALL [None]
  - FEELING ABNORMAL [None]
  - HAEMATOCHEZIA [None]
  - HAEMORRHOIDAL HAEMORRHAGE [None]
  - HAEMORRHOIDS [None]
  - HEADACHE [None]
  - HEART RATE IRREGULAR [None]
  - HYPERHIDROSIS [None]
  - INFLUENZA [None]
  - INTERVERTEBRAL DISC DISORDER [None]
  - INTERVERTEBRAL DISC PROTRUSION [None]
  - JOINT SPRAIN [None]
  - MUSCLE SPASMS [None]
  - MYOCARDIAL INFARCTION [None]
  - NAUSEA [None]
  - NECK INJURY [None]
  - NON-CARDIAC CHEST PAIN [None]
  - OSTEOPOROSIS [None]
  - PALPITATIONS [None]
  - PNEUMONIA [None]
  - PRESCRIBED OVERDOSE [None]
  - ROAD TRAFFIC ACCIDENT [None]
  - STRESS [None]
  - TRANSIENT ISCHAEMIC ATTACK [None]
  - TREATMENT NONCOMPLIANCE [None]
  - VISION BLURRED [None]
  - VOMITING [None]
